FAERS Safety Report 10955772 (Version 2)
Quarter: 2015Q2

REPORT INFORMATION
  Report Type: Spontaneous
  Country: US (occurrence: US)
  Receive Date: 20150326
  Receipt Date: 20150604
  Transmission Date: 20150821
  Serious: No
  Sender: FDA-Public Use
  Company Number: US-BIOGENIDEC-2015BI037127

PATIENT
  Age: 46 Year
  Sex: Female

DRUGS (1)
  1. TYSABRI [Suspect]
     Active Substance: NATALIZUMAB
     Indication: MULTIPLE SCLEROSIS
     Route: 042
     Dates: start: 20150116

REACTIONS (12)
  - Gastric disorder [Not Recovered/Not Resolved]
  - Feeling abnormal [Recovered/Resolved]
  - Fatigue [Not Recovered/Not Resolved]
  - Dry mouth [Not Recovered/Not Resolved]
  - Visual impairment [Recovered/Resolved]
  - Rash papular [Not Recovered/Not Resolved]
  - Increased upper airway secretion [Not Recovered/Not Resolved]
  - Lymphadenopathy [Not Recovered/Not Resolved]
  - Memory impairment [Recovered/Resolved]
  - Pruritus [Not Recovered/Not Resolved]
  - Balance disorder [Recovered/Resolved]
  - Hypoaesthesia [Recovered/Resolved]

NARRATIVE: CASE EVENT DATE: 201501
